FAERS Safety Report 5332913-0 (Version None)
Quarter: 2007Q2

REPORT INFORMATION
  Report Type: 
  Country: None (occurrence: None)
  Receive Date: 20070521
  Receipt Date: 20070507
  Transmission Date: 20071010
  Serious: Yes (Hospitalization)
  Sender: FDA-Public Use
  Company Number: APP200700079

PATIENT
  Age: 64 Year
  Sex: Male

DRUGS (3)
  1. HEPARIN SODIUM [Suspect]
     Indication: ANTICOAGULANT THERAPY
  2. WARFARIN SODIUM [Concomitant]
  3. PHYTONADIONE [Concomitant]

REACTIONS (22)
  - ABDOMINAL PAIN UPPER [None]
  - ABDOMINAL TENDERNESS [None]
  - ACTIVATED PARTIAL THROMBOPLASTIN TIME PROLONGED [None]
  - ARRHYTHMIA [None]
  - ATRIAL FIBRILLATION [None]
  - BLOOD PRESSURE DECREASED [None]
  - BODY TEMPERATURE INCREASED [None]
  - CARDIAC TAMPONADE [None]
  - COAGULOPATHY [None]
  - DYSPNOEA [None]
  - HAEMOGLOBIN DECREASED [None]
  - HEART RATE INCREASED [None]
  - HEPARIN-INDUCED THROMBOCYTOPENIA [None]
  - INTERNATIONAL NORMALISED RATIO INCREASED [None]
  - PALPITATIONS [None]
  - PERICARDIAL EFFUSION [None]
  - PROTHROMBIN TIME PROLONGED [None]
  - RESPIRATORY DISTRESS [None]
  - SPLENIC HAEMORRHAGE [None]
  - SPLENIC INFARCTION [None]
  - SPLENIC RUPTURE [None]
  - THROMBOSIS [None]
